FAERS Safety Report 10061540 (Version 1)
Quarter: 2014Q2

REPORT INFORMATION
  Report Type: Spontaneous
  Country: US (occurrence: None)
  Receive Date: 20140403
  Receipt Date: 20140403
  Transmission Date: 20141212
  Serious: Yes (Death, Hospitalization)
  Sender: FDA-Public Use
  Company Number: IPC201403-000140

PATIENT
  Age: 70 Year
  Sex: Male

DRUGS (7)
  1. PROPRANOLOL HYDROCHLORIDE [Suspect]
  2. AMLODIPINE BESILATE [Suspect]
  3. RAMIPRIL [Suspect]
  4. GLIBENCLAMIDE [Suspect]
     Indication: DIABETES MELLITUS
     Dates: start: 201110
  5. NEXAVAR [Suspect]
     Dates: start: 20120110
  6. METAMIZOLE [Suspect]
  7. TORASEMIDE [Suspect]

REACTIONS (6)
  - Hypoglycaemia [None]
  - Hepatorenal syndrome [None]
  - Hepatic encephalopathy [None]
  - Portal vein thrombosis [None]
  - Drug interaction [None]
  - Hepatic cirrhosis [None]
